FAERS Safety Report 22033544 (Version 2)
Quarter: 2023Q1

REPORT INFORMATION
  Report Type: Spontaneous
  Country: JP (occurrence: JP)
  Receive Date: 20230224
  Receipt Date: 20230313
  Transmission Date: 20230417
  Serious: Yes (Hospitalization)
  Sender: FDA-Public Use
  Company Number: JP-MLMSERVICE-20230217-4098301-2

PATIENT
  Age: 78 Year
  Sex: Male

DRUGS (16)
  1. CARBIDOPA\LEVODOPA [Suspect]
     Active Substance: CARBIDOPA\LEVODOPA
     Indication: Dementia with Lewy bodies
     Dosage: 300 MG/DAY
     Route: 048
  2. CARBIDOPA\LEVODOPA [Suspect]
     Active Substance: CARBIDOPA\LEVODOPA
     Dosage: SUBSEQUENTLY TITRATED UPWARD TO 600 MG/DAY
     Route: 048
  3. CARBIDOPA\LEVODOPA [Suspect]
     Active Substance: CARBIDOPA\LEVODOPA
     Dosage: REDUCED FROM 600 MG/DAY TO 300 MG/DAY
     Route: 048
  4. CARBIDOPA\LEVODOPA [Suspect]
     Active Substance: CARBIDOPA\LEVODOPA
     Dosage: INCREASED TO 450 MG/DAY
     Route: 048
  5. DONEPEZIL HYDROCHLORIDE [Suspect]
     Active Substance: DONEPEZIL HYDROCHLORIDE
     Indication: Cognitive disorder
     Dosage: 3 MG/DAY
     Route: 048
  6. DONEPEZIL HYDROCHLORIDE [Suspect]
     Active Substance: DONEPEZIL HYDROCHLORIDE
     Dosage: 3 MG/DAY
     Route: 048
  7. PRAMIPEXOLE [Suspect]
     Active Substance: PRAMIPEXOLE
     Indication: Restless legs syndrome
     Dosage: 1.5 MILLIGRAM, QD
     Route: 048
  8. AMLODIPINE [Concomitant]
     Active Substance: AMLODIPINE BESYLATE
     Dosage: 2.5 MILLIGRAM, QD
     Route: 048
  9. CANDESARTAN [Concomitant]
     Active Substance: CANDESARTAN
     Dosage: 8 MILLIGRAM, QD
     Route: 048
  10. ROSUVASTATIN [Concomitant]
     Active Substance: ROSUVASTATIN
     Dosage: 2.5 MILLIGRAM, QD
     Route: 048
  11. FLECAINIDE [Concomitant]
     Active Substance: FLECAINIDE
     Dosage: 100 MILLIGRAM, QD
     Route: 048
  12. VIBEGRON [Concomitant]
     Active Substance: VIBEGRON
     Dosage: 50 MILLIGRAM, QD
     Route: 048
  13. CERNITIN GBX [Concomitant]
     Dosage: 120 MILLIGRAM, QD
     Route: 048
  14. SENNOSIDES A AND B [Concomitant]
     Active Substance: SENNOSIDES A AND B
     Dosage: 24 MILLIGRAM, QD
     Route: 048
  15. MAGNESIUM OXIDE [Concomitant]
     Active Substance: MAGNESIUM OXIDE
     Dosage: 1000 MILLIGRAM, QD
     Route: 048
  16. ELOBIXIBAT [Concomitant]
     Active Substance: ELOBIXIBAT
     Dosage: 10 MILLIGRAM, QD
     Route: 048

REACTIONS (1)
  - Pleurothotonus [Recovering/Resolving]
